FAERS Safety Report 17528670 (Version 1)
Quarter: 2020Q1

REPORT INFORMATION
  Report Type: Spontaneous
  Country: US (occurrence: US)
  Receive Date: 20200311
  Receipt Date: 20200311
  Transmission Date: 20200409
  Serious: No
  Sender: FDA-Public Use
  Company Number: US-TEVA-2020-US-1196118

PATIENT
  Age: 68 Year
  Sex: Male

DRUGS (2)
  1. WARFARIN-TEVA [Suspect]
     Active Substance: WARFARIN SODIUM
  2. WARFARIN-TEVA [Suspect]
     Active Substance: WARFARIN SODIUM
     Indication: THROMBOSIS

REACTIONS (2)
  - Product quality issue [Unknown]
  - International normalised ratio decreased [Recovering/Resolving]
